FAERS Safety Report 9245020 (Version 1)
Quarter: 2013Q2

REPORT INFORMATION
  Report Type: Report from Study
  Country: PH (occurrence: PH)
  Receive Date: 20130422
  Receipt Date: 20130422
  Transmission Date: 20140414
  Serious: Yes (Death, Hospitalization)
  Sender: FDA-Public Use
  Company Number: PHHY2013PH037951

PATIENT
  Sex: Female

DRUGS (1)
  1. ACLASTA [Suspect]
     Indication: OSTEOPOROSIS
     Dosage: ANNUALLY
     Route: 042
     Dates: start: 20120414

REACTIONS (6)
  - Cardiac arrest [Fatal]
  - Pneumonia [Fatal]
  - Haemorrhage [Fatal]
  - Lung disorder [Unknown]
  - Cardiac disorder [Unknown]
  - Pyrexia [Unknown]
